FAERS Safety Report 14973273 (Version 7)
Quarter: 2020Q3

REPORT INFORMATION
  Report Type: Other
  Country: CA (occurrence: CA)
  Receive Date: 20180605
  Receipt Date: 20200806
  Transmission Date: 20201102
  Serious: Yes (Other)
  Sender: FDA-Public Use
  Company Number: CA-ROCHE-2111534

PATIENT
  Age: 31 Year
  Sex: Female

DRUGS (11)
  1. ELAVIL [Concomitant]
     Active Substance: AMITRIPTYLINE HYDROCHLORIDE
     Indication: PAIN
     Dates: start: 201602
  2. CYCLEN [Concomitant]
     Active Substance: ETHINYL ESTRADIOL\NORGESTIMATE
     Indication: CONTRACEPTION
     Route: 048
     Dates: start: 2013
  3. ALDACTONE [Concomitant]
     Active Substance: SPIRONOLACTONE
  4. CITALOPRAM [Concomitant]
     Active Substance: CITALOPRAM HYDROBROMIDE
     Indication: DEPRESSION
     Route: 048
     Dates: start: 201602
  5. ATIVAN [Concomitant]
     Active Substance: LORAZEPAM
     Route: 060
  6. OCREVUS [Suspect]
     Active Substance: OCRELIZUMAB
     Indication: RELAPSING-REMITTING MULTIPLE SCLEROSIS
     Dosage: 300MG DAY 0 AND DAY 14, THEN 600MG Q 6 MONTHS ;ONGOING: YES
     Route: 042
     Dates: start: 20180411
  7. CRESTOR [Concomitant]
     Active Substance: ROSUVASTATIN CALCIUM
     Indication: HEPATIC STEATOSIS
     Dates: start: 201602
  8. LAMICTAL [Concomitant]
     Active Substance: LAMOTRIGINE
     Indication: NEURALGIA
     Dates: start: 201702
  9. PANTOPRAZOL [Concomitant]
     Active Substance: PANTOPRAZOLE SODIUM
  10. VALTREX [Concomitant]
     Active Substance: VALACYCLOVIR HYDROCHLORIDE
     Dosage: 4 TABLETS EVERY 12 HOURS AND CONTINUES ONCE DAILY AFTER, FOR COLD SORES ATTACK
     Dates: start: 201602
  11. METFORMIN [Concomitant]
     Active Substance: METFORMIN HYDROCHLORIDE

REACTIONS (20)
  - Pneumonia [Unknown]
  - Feeling hot [Not Recovered/Not Resolved]
  - Tachycardia [Recovered/Resolved]
  - Rhinorrhoea [Not Recovered/Not Resolved]
  - Oropharyngeal pain [Not Recovered/Not Resolved]
  - Night sweats [Not Recovered/Not Resolved]
  - Cough [Not Recovered/Not Resolved]
  - Bronchitis [Unknown]
  - Depressed mood [Not Recovered/Not Resolved]
  - Fatigue [Not Recovered/Not Resolved]
  - Vaginal discharge [Not Recovered/Not Resolved]
  - Nightmare [Not Recovered/Not Resolved]
  - Morose [Not Recovered/Not Resolved]
  - Oral herpes [Not Recovered/Not Resolved]
  - Thyroid disorder [Unknown]
  - Throat irritation [Not Recovered/Not Resolved]
  - Nasal discomfort [Not Recovered/Not Resolved]
  - Menorrhagia [Not Recovered/Not Resolved]
  - Fatigue [Not Recovered/Not Resolved]
  - Back pain [Not Recovered/Not Resolved]

NARRATIVE: CASE EVENT DATE: 20180411
